FAERS Safety Report 18574989 (Version 1)
Quarter: 2020Q4

REPORT INFORMATION
  Report Type: Spontaneous
  Country: US (occurrence: US)
  Receive Date: 20201203
  Receipt Date: 20201203
  Transmission Date: 20210114
  Serious: Yes (Other)
  Sender: FDA-Public Use
  Company Number: US-MYLANLABS-2020M1098109

PATIENT
  Sex: Female

DRUGS (1)
  1. TRAMADOL. [Suspect]
     Active Substance: TRAMADOL
     Indication: PRODUCT USED FOR UNKNOWN INDICATION
     Dosage: UNK
     Route: 065

REACTIONS (11)
  - Drug dependence [Not Recovered/Not Resolved]
  - Liver injury [Unknown]
  - Dyspepsia [Unknown]
  - Psychomotor skills impaired [Unknown]
  - Depression [Unknown]
  - Nausea [Unknown]
  - Sedation [Unknown]
  - Emotional distress [Unknown]
  - Decreased immune responsiveness [Unknown]
  - Anxiety [Unknown]
  - Pain [Unknown]
